FAERS Safety Report 9415038 (Version 2)
Quarter: 2015Q1

REPORT INFORMATION
  Report Type: Report from Study
  Country: US (occurrence: US)
  Receive Date: 20130723
  Receipt Date: 20150319
  Transmission Date: 20150721
  Serious: Yes (Hospitalization, Other)
  Sender: FDA-Public Use
  Company Number: US-ROCHE-1250005

PATIENT
  Age: 74 Year
  Sex: Female

DRUGS (4)
  1. CIXUTUMUMAB [Suspect]
     Active Substance: CIXUTUMUMAB
     Indication: NON-SMALL CELL LUNG CANCER
     Dosage: OVER 1 HOUR ON DAYS 1,8 AND 15 OF CYCLE (CYCLE 1-6)LAST DOSE ADMINISTERED ON 28/MAR/2013
     Route: 042
     Dates: start: 20130128
  2. BEVACIZUMAB [Suspect]
     Active Substance: BEVACIZUMAB
     Indication: NON-SMALL CELL LUNG CANCER
     Dosage: ON DAY 1 OVER 30-90 MINS (CYCLES 1-6) CYCLE 7 (OVER 30MINS) ON DAY1,  LAST DOSE PRIOR TO SAE 02/APR
     Route: 042
     Dates: start: 20130128
  3. PACLITAXEL. [Suspect]
     Active Substance: PACLITAXEL
     Indication: NON-SMALL CELL LUNG CANCER
     Dosage: OVER 3 HOURS ON DAY1 OF CYCLE (CYCLE 1-6)  LAST DOSE PRIOR TO SAE 02/APR/2013
     Route: 042
     Dates: start: 20130128
  4. CARBOPLATIN. [Suspect]
     Active Substance: CARBOPLATIN
     Indication: NON-SMALL CELL LUNG CANCER
     Dosage: AUC 6 30MINS ON DAY 1 (CYCLE 1-6)  LAST DOSE PRIOR TO SAE 02/APR/2013
     Route: 042
     Dates: start: 20130128

REACTIONS (3)
  - Seizure [Recovered/Resolved]
  - Hypertension [Recovered/Resolved]
  - Posterior reversible encephalopathy syndrome [Recovered/Resolved]

NARRATIVE: CASE EVENT DATE: 20130407
